FAERS Safety Report 17804453 (Version 1)
Quarter: 2020Q2

REPORT INFORMATION
  Report Type: Spontaneous
  Country: US (occurrence: US)
  Receive Date: 20200519
  Receipt Date: 20200519
  Transmission Date: 20200714
  Serious: Yes (Other)
  Sender: FDA-Public Use
  Company Number: US-FRESENIUS KABI-FK202004850

PATIENT
  Age: 81 Year
  Sex: Female

DRUGS (1)
  1. CASPOFUNGIN (MANUFACTURER UNKNOWN) [Suspect]
     Active Substance: CASPOFUNGIN
     Indication: INFECTION
     Dosage: UNKNOWN
     Route: 065

REACTIONS (6)
  - White blood cell count decreased [Unknown]
  - Atrial flutter [Recovered/Resolved]
  - Respiratory distress [Recovered/Resolved]
  - Adverse event [Unknown]
  - Haemoglobin decreased [Unknown]
  - Acute kidney injury [Recovered/Resolved]
